FAERS Safety Report 7730213-2 (Version None)
Quarter: 2011Q3

REPORT INFORMATION
  Report Type: 
  Country: None (occurrence: None)
  Receive Date: 20110906
  Receipt Date: 20110901
  Transmission Date: 20111222
  Serious: Yes (Death)
  Sender: FDA-Public Use
  Company Number: PHFR2011GB04958

PATIENT
  Sex: Female

DRUGS (2)
  1. CLOZAPINE [Suspect]
     Indication: SCHIZOPHRENIA
     Dosage: 175 MG
     Route: 048
     Dates: start: 20110722
  2. BENDROFLUAZIDE [Concomitant]

REACTIONS (3)
  - CARDIAC DISORDER [None]
  - RESPIRATORY ARREST [None]
  - PNEUMONIA [None]
